FAERS Safety Report 6979099-4 (Version None)
Quarter: 2010Q3

REPORT INFORMATION
  Report Type: 
  Country: None (occurrence: None)
  Receive Date: 20100913
  Receipt Date: 20100831
  Transmission Date: 20110219
  Serious: Yes (Other)
  Sender: FDA-Public Use
  Company Number: PHHY2010FR58102

PATIENT
  Age: 53 Year
  Sex: Female

DRUGS (5)
  1. TEGRETOL [Suspect]
     Indication: BIPOLAR DISORDER
     Dosage: 400 MG, DAILY
  2. LUTERAN [Concomitant]
  3. SURGESTONE [Concomitant]
     Dosage: UNK, LONG TIME
  4. VITAMIN D [Concomitant]
  5. UVEDOSE [Concomitant]
     Dosage: 2 DOSES,

REACTIONS (5)
  - BLOOD PARATHYROID HORMONE INCREASED [None]
  - HYPERCALCAEMIA [None]
  - HYPERCALCIURIA [None]
  - OSTEOPENIA [None]
  - VITAMIN D DEFICIENCY [None]
